FAERS Safety Report 5782364-X (Version None)
Quarter: 2008Q2

REPORT INFORMATION
  Report Type: 
  Country: None (occurrence: None)
  Receive Date: 20080623
  Receipt Date: 20080611
  Transmission Date: 20081010
  Serious: Yes (Hospitalization)
  Sender: FDA-Public Use
  Company Number: SK-PFIZER INC-2007035874

PATIENT
  Sex: Male
  Weight: 103 kg

DRUGS (2)
  1. SU-011,248 [Suspect]
     Indication: RENAL CELL CARCINOMA
     Route: 048
     Dates: start: 20060127, end: 20070423
  2. SU-011,248 [Suspect]
     Indication: RENAL CANCER

REACTIONS (1)
  - MYOCARDIAL INFARCTION [None]
